FAERS Safety Report 25149312 (Version 3)
Quarter: 2025Q2

REPORT INFORMATION
  Report Type: Spontaneous
  Country: US (occurrence: US)
  Receive Date: 20250402
  Receipt Date: 20250605
  Transmission Date: 20250716
  Serious: Yes (Disabling)
  Sender: VIIV
  Company Number: US-VIIV HEALTHCARE- US2025036643.

PATIENT

DRUGS (1)
  1. JULUCA [Suspect]
     Active Substance: DOLUTEGRAVIR SODIUM\RILPIVIRINE HYDROCHLORIDE
     Indication: Product used for unknown indication

REACTIONS (1)
  - Hearing disability [Unknown]
